FAERS Safety Report 10643168 (Version 1)
Quarter: 2014Q4

REPORT INFORMATION
  Report Type: Spontaneous
  Country: US (occurrence: None)
  Receive Date: 20141121
  Receipt Date: 20141121
  Transmission Date: 20150529
  Serious: No
  Sender: FDA-Public Use
  Company Number: 163-10004-14081162

PATIENT
  Age: 64 Year
  Sex: Female
  Weight: 117.94 kg

DRUGS (3)
  1. DIOVAN(VALSTARTAN) [Concomitant]
  2. FLOMAX(TAMSULOSIN HYDROCHLORIDE) [Concomitant]
  3. OTEZLA [Suspect]
     Active Substance: APREMILAST
     Indication: PSORIATIC ARTHROPATHY
     Route: 048
     Dates: start: 20140728, end: 20140815

REACTIONS (9)
  - Dizziness [None]
  - Electrolyte imbalance [None]
  - Muscle spasms [None]
  - Nausea [None]
  - Asthenia [None]
  - Diarrhoea [None]
  - Abdominal discomfort [None]
  - Abdominal pain upper [None]
  - Abdominal pain [None]

NARRATIVE: CASE EVENT DATE: 201407
